FAERS Safety Report 8513677-6 (Version None)
Quarter: 2012Q3

REPORT INFORMATION
  Report Type: 
  Country: None (occurrence: None)
  Receive Date: 20120717
  Receipt Date: 20120706
  Transmission Date: 20120928
  Serious: Yes (Hospitalization)
  Sender: FDA-Public Use
  Company Number: JP-BRISTOL-MYERS SQUIBB COMPANY-16765745

PATIENT
  Age: 30 Year
  Sex: Male

DRUGS (4)
  1. ABILIFY [Suspect]
     Route: 048
     Dates: start: 20120703
  2. RISPERDAL [Suspect]
     Route: 048
  3. SILECE [Suspect]
     Dosage: TAB
     Route: 048
  4. TEGRETOL [Suspect]
     Route: 048

REACTIONS (5)
  - PYREXIA [None]
  - NEUTROPHIL COUNT INCREASED [None]
  - BLOOD CREATINE PHOSPHOKINASE INCREASED [None]
  - WHITE BLOOD CELL COUNT INCREASED [None]
  - MULTIPLE DRUG OVERDOSE [None]
